FAERS Safety Report 4600835-6 (Version None)
Quarter: 2005Q1

REPORT INFORMATION
  Report Type: 
  Country: None (occurrence: None)
  Receive Date: 20050304
  Receipt Date: 20050224
  Transmission Date: 20050727
  Serious: No
  Sender: FDA-Public Use
  Company Number: 2005AP01374

PATIENT
  Age: 13 Year
  Sex: Male

DRUGS (6)
  1. XYLOCAINE [Suspect]
     Indication: LOCAL ANAESTHESIA
     Dosage: 5 ML TP
     Dates: start: 20050124, end: 20050124
  2. KETALAR [Concomitant]
  3. ATARAX [Concomitant]
  4. ATROPINE SULFATE [Concomitant]
  5. SOSEGON [Concomitant]
  6. MIDAZOLAM HCL [Concomitant]

REACTIONS (2)
  - ANAESTHETIC COMPLICATION [None]
  - LARYNGEAL OEDEMA [None]
